FAERS Safety Report 6016226-X (Version None)
Quarter: 2008Q4

REPORT INFORMATION
  Report Type: 
  Country: None (occurrence: None)
  Receive Date: 20081217
  Receipt Date: 20081002
  Transmission Date: 20090506
  Serious: Yes (Other)
  Sender: FDA-Public Use
  Company Number: US-WYE-H05657908

PATIENT
  Age: 76 Year
  Sex: Male
  Weight: 92.62 kg

DRUGS (1)
  1. TORISEL [Suspect]
     Indication: RENAL CANCER
     Dosage: INTRAVENOUS; 25 NG, INTRAVENOUS
     Route: 042
     Dates: start: 20080520, end: 20080819

REACTIONS (2)
  - OEDEMA [None]
  - SKIN REACTION [None]
